FAERS Safety Report 7863375-7 (Version None)
Quarter: 2011Q4

REPORT INFORMATION
  Report Type: 
  Country: None (occurrence: None)
  Receive Date: 20111027
  Receipt Date: 20101203
  Transmission Date: 20120403
  Serious: No
  Sender: FDA-Public Use
  Company Number: US-AMGEN-USASP2010007555

PATIENT
  Age: 47 Year
  Sex: Female

DRUGS (2)
  1. ENBREL [Suspect]
     Indication: PSORIATIC ARTHROPATHY
     Dosage: 50 MG, QWK
     Dates: start: 20030301, end: 20100801
  2. ENBREL [Suspect]
     Indication: PSORIASIS

REACTIONS (4)
  - THERAPEUTIC RESPONSE DECREASED [None]
  - INSOMNIA [None]
  - ARTHRALGIA [None]
  - PSORIASIS [None]
